FAERS Safety Report 26137741 (Version 1)
Quarter: 2025Q4

REPORT INFORMATION
  Report Type: Report from Study
  Country: US (occurrence: US)
  Receive Date: 20251209
  Receipt Date: 20251209
  Transmission Date: 20260117
  Serious: Yes (Other)
  Sender: TEVA
  Company Number: US-TEVA-VS-3399850

PATIENT
  Age: 62 Year
  Sex: Male

DRUGS (1)
  1. AUSTEDO [Suspect]
     Active Substance: DEUTETRABENAZINE
     Indication: Tardive dyskinesia
     Dosage: BID
     Route: 048
     Dates: start: 20251013

REACTIONS (5)
  - Suicidal ideation [Unknown]
  - Abdominal discomfort [Unknown]
  - Dysphagia [Unknown]
  - Affective disorder [Unknown]
  - Somnolence [Unknown]

NARRATIVE: CASE EVENT DATE: 20250101
